FAERS Safety Report 6257297-5 (Version None)
Quarter: 2009Q3

REPORT INFORMATION
  Report Type: 
  Country: None (occurrence: None)
  Receive Date: 20090706
  Receipt Date: 20090624
  Transmission Date: 20100115
  Serious: Yes (Other)
  Sender: FDA-Public Use
  Company Number: JP-PFIZER INC-2009233108

PATIENT
  Age: 21 Year

DRUGS (2)
  1. AMPICILLIN SODIUM/SULBACTAM SODIUM [Suspect]
     Indication: PYREXIA
     Route: 042
     Dates: start: 20071101
  2. CEFOPERAZONE SODIUM, SULBACTAM SODIUM [Suspect]
     Indication: PYREXIA
     Route: 042
     Dates: start: 20071101

REACTIONS (2)
  - HEPATIC ENCEPHALOPATHY [None]
  - HEPATITIS FULMINANT [None]
